FAERS Safety Report 23188451 (Version 2)
Quarter: 2024Q1

REPORT INFORMATION
  Report Type: Spontaneous
  Country: US (occurrence: US)
  Receive Date: 20231115
  Receipt Date: 20240116
  Transmission Date: 20240410
  Serious: No
  Sender: FDA-Public Use
  Company Number: US-Merz Pharmaceuticals GmbH-23-03280

PATIENT
  Age: 42 Year
  Sex: Female

DRUGS (4)
  1. XEOMIN [Suspect]
     Active Substance: INCOBOTULINUMTOXINA
     Indication: Product used for unknown indication
  2. XEOMIN [Suspect]
     Active Substance: INCOBOTULINUMTOXINA
  3. DYSPORT [Concomitant]
     Active Substance: ABOBOTULINUMTOXINA
     Dates: start: 20230204, end: 20230204
  4. DYSPORT [Concomitant]
     Active Substance: ABOBOTULINUMTOXINA
     Dates: start: 20230622, end: 20230622

REACTIONS (2)
  - Throat tightness [Unknown]
  - Condition aggravated [Unknown]
